FAERS Safety Report 23351257 (Version 1)
Quarter: 2023Q4

REPORT INFORMATION
  Report Type: Spontaneous
  Country: US (occurrence: US)
  Receive Date: 20231229
  Receipt Date: 20231229
  Transmission Date: 20240110
  Serious: No
  Sender: FDA-Public Use
  Company Number: US-Nobelpharma America, LLC-NPA-2023-02507

PATIENT
  Sex: Male

DRUGS (1)
  1. HYFTOR [Suspect]
     Active Substance: SIROLIMUS
     Indication: Benign neoplasm of skin
     Dosage: APPLY 1 APPLICATION TOPICALLY TWICE A DAY TO SMALL LESIONS ON THE FACE NO MORE THAN 2 CM AREA
     Route: 003
     Dates: start: 20231205

REACTIONS (3)
  - Product dose omission issue [None]
  - Illness [None]
  - Product use in unapproved indication [None]
